FAERS Safety Report 8502275-6 (Version None)
Quarter: 2012Q2

REPORT INFORMATION
  Report Type: 
  Country: None (occurrence: None)
  Receive Date: 20120405
  Receipt Date: 20110112
  Transmission Date: 20120825
  Serious: Yes (Other)
  Sender: FDA-Public Use
  Company Number: PHEH2011US00440

PATIENT
  Sex: Female

DRUGS (2)
  1. FOSAMAX [Suspect]
  2. RECLAST [Suspect]
     Dosage: INFUSION

REACTIONS (6)
  - INJURY [None]
  - DECREASED INTEREST [None]
  - PAIN [None]
  - ANXIETY [None]
  - OSTEONECROSIS OF JAW [None]
  - DISABILITY [None]
